FAERS Safety Report 9801824 (Version 3)
Quarter: 2014Q1

REPORT INFORMATION
  Report Type: Spontaneous
  Country: US (occurrence: US)
  Receive Date: 20140107
  Receipt Date: 20140128
  Transmission Date: 20141002
  Serious: Yes (Death, Hospitalization, Other)
  Sender: FDA-Public Use
  Company Number: US-TAKEDA-2014TUS000042

PATIENT
  Sex: 0

DRUGS (22)
  1. BRINTELLIX [Suspect]
     Indication: MAJOR DEPRESSION
     Dosage: 5 MG, UNK
     Route: 048
     Dates: start: 20131226, end: 20131228
  2. BRINTELLIX [Suspect]
     Dosage: 10 MG, UNK
     Route: 048
     Dates: start: 20131229, end: 20131230
  3. CYMBALTA [Concomitant]
     Dosage: 20 MG, BID
     Route: 048
     Dates: start: 20131218
  4. CYMBALTA [Concomitant]
     Dosage: 30 MG, UNK
     Dates: start: 20131224
  5. ATIVAN [Concomitant]
     Dosage: 0.5 MG, TID
  6. SEROQUEL [Concomitant]
     Route: 048
  7. INSULIN [Concomitant]
     Indication: DIABETES MELLITUS
     Route: 042
  8. ALL OTHER THERAPEUTIC PRODUCTS [Concomitant]
     Indication: DIABETES MELLITUS
     Route: 048
  9. NORVASC [Concomitant]
  10. VALSARTAN [Concomitant]
     Dosage: 320 MG, QD
     Route: 048
  11. HYDRALAZINE [Concomitant]
     Dosage: 10 MG, QD
     Route: 048
  12. NEBIVOLOL [Concomitant]
     Dosage: 20 MG, QD
     Route: 048
  13. ASA [Concomitant]
  14. CRESTOR [Concomitant]
  15. METFORMIN [Concomitant]
     Dosage: 500 MG, BID
     Route: 048
  16. JANUVIA [Concomitant]
  17. AMLODIPINE [Concomitant]
     Dosage: 10 MG, QD
     Route: 048
  18. LORAZEPAM [Concomitant]
     Dosage: 0.5 MG, BID
     Route: 048
  19. ASPIRIN (E.C.) [Concomitant]
     Dosage: 81 MG, BEDTIME
     Route: 048
  20. ROSUVASTATIN [Concomitant]
     Dosage: 20 MG, BEDTIME
     Route: 048
  21. PIOGLITAZONE [Concomitant]
     Dosage: 30 MG, BEDTIME
     Route: 048
  22. SITAGLIPTIN [Concomitant]
     Dosage: 100 MG, QD
     Route: 048

REACTIONS (1)
  - Haemorrhagic stroke [Fatal]
